FAERS Safety Report 15784209 (Version 2)
Quarter: 2019Q1

REPORT INFORMATION
  Report Type: Spontaneous
  Country: US (occurrence: US)
  Receive Date: 20190103
  Receipt Date: 20190109
  Transmission Date: 20190417
  Serious: No
  Sender: FDA-Public Use
  Company Number: US-ASTRAZENECA-2019SE00395

PATIENT
  Sex: Female

DRUGS (1)
  1. BYDUREON [Suspect]
     Active Substance: EXENATIDE
     Route: 065

REACTIONS (6)
  - Hyperchlorhydria [Unknown]
  - Nausea [Unknown]
  - Somnolence [Unknown]
  - Injection site mass [Unknown]
  - Dizziness [Unknown]
  - Vomiting [Unknown]
